FAERS Safety Report 5338526-9 (Version None)
Quarter: 2007Q2

REPORT INFORMATION
  Report Type: 
  Country: None (occurrence: None)
  Receive Date: 20070322
  Receipt Date: 20060112
  Transmission Date: 20071010
  Serious: Yes (Other)
  Sender: FDA-Public Use
  Company Number: 200610044BCC

PATIENT
  Age: 57 Year
  Sex: Male
  Weight: 95.2554 kg

DRUGS (5)
  1. ALEVE [Suspect]
     Dosage: SEE IMAGE
     Route: 048
     Dates: start: 20051101
  2. ALEVE [Suspect]
     Dosage: SEE IMAGE
     Route: 048
     Dates: start: 20051230
  3. AVAPRO [Concomitant]
  4. HYDROCHLOROTHIAZIDE [Concomitant]
  5. TOPROL-XL [Concomitant]

REACTIONS (9)
  - ANAPHYLACTIC REACTION [None]
  - DYSPNOEA [None]
  - ERYTHEMA [None]
  - HEADACHE [None]
  - OEDEMA PERIPHERAL [None]
  - PRURITUS [None]
  - SWELLING [None]
  - SWELLING FACE [None]
  - URTICARIA [None]
